FAERS Safety Report 20864113 (Version 2)
Quarter: 2023Q1

REPORT INFORMATION
  Report Type: Spontaneous
  Country: US (occurrence: US)
  Receive Date: 20220523
  Receipt Date: 20230201
  Transmission Date: 20230417
  Serious: Yes (Other)
  Sender: FDA-Public Use
  Company Number: US-GILEAD-2022-0582663

PATIENT
  Sex: Female

DRUGS (39)
  1. TRUVADA [Suspect]
     Active Substance: EMTRICITABINE\TENOFOVIR DISOPROXIL FUMARATE
     Indication: HIV infection
     Dosage: UNK
     Route: 048
     Dates: start: 2004, end: 20181029
  2. DESCOVY [Concomitant]
     Active Substance: EMTRICITABINE\TENOFOVIR ALAFENAMIDE FUMARATE
  3. NORVIR [Concomitant]
     Active Substance: RITONAVIR
  4. PREZCOBIX [Concomitant]
     Active Substance: COBICISTAT\DARUNAVIR ETHANOLATE
  5. PREZISTA [Concomitant]
     Active Substance: DARUNAVIR ETHANOLATE
  6. VIRAMUNE [Concomitant]
     Active Substance: NEVIRAPINE
  7. DAPSONE [Concomitant]
     Active Substance: DAPSONE
  8. VALACYCLOVIR [Concomitant]
     Active Substance: VALACYCLOVIR HYDROCHLORIDE
  9. BACTRIM [Concomitant]
     Active Substance: SULFAMETHOXAZOLE\TRIMETHOPRIM
  10. CIPROFLOXACIN [Concomitant]
     Active Substance: CIPROFLOXACIN
  11. CLINDAMYCIN [Concomitant]
     Active Substance: CLINDAMYCIN
  12. BENZONATATE [Concomitant]
     Active Substance: BENZONATATE
  13. HYDROCHLOROTHIAZIDE [Concomitant]
     Active Substance: HYDROCHLOROTHIAZIDE
  14. DOCONEXENT\ICOSAPENT [Concomitant]
     Active Substance: DOCONEXENT\ICOSAPENT
  15. CENTRUM SILVER [ASCORBIC ACID;BETACAROTENE;BIOTIN;CALCIUM PHOSPHATE;CH [Concomitant]
  16. CLONIDINE [Concomitant]
     Active Substance: CLONIDINE
  17. ATENOLOL [Concomitant]
     Active Substance: ATENOLOL
  18. AZITHROMYCIN [Concomitant]
     Active Substance: AZITHROMYCIN
  19. CHOLESTYRAMINE [Concomitant]
     Active Substance: CHOLESTYRAMINE
  20. GLIMEPIRIDE [Concomitant]
     Active Substance: GLIMEPIRIDE
  21. LISINOPRIL [Concomitant]
     Active Substance: LISINOPRIL
  22. PAROXETINE [Concomitant]
     Active Substance: PAROXETINE
  23. CYANOCOBALAMIN [Concomitant]
     Active Substance: CYANOCOBALAMIN
  24. METOPROLOL [Concomitant]
     Active Substance: METOPROLOL
  25. VITAMIN D2 [Concomitant]
     Active Substance: ERGOCALCIFEROL
  26. LORATADINE [Concomitant]
     Active Substance: LORATADINE
  27. IBUPROFEN [Concomitant]
     Active Substance: IBUPROFEN
  28. DOXYCYCLINE [Concomitant]
     Active Substance: DOXYCYCLINE
  29. ACETAMINOPHEN [Concomitant]
     Active Substance: ACETAMINOPHEN
  30. HYDROQUINONE [Concomitant]
     Active Substance: HYDROQUINONE
  31. ATORVASTATIN [Concomitant]
     Active Substance: ATORVASTATIN
  32. PREDNISONE [Concomitant]
     Active Substance: PREDNISONE
  33. ROSUVASTATIN [Concomitant]
     Active Substance: ROSUVASTATIN
  34. ACYCLOVIR [Concomitant]
     Active Substance: ACYCLOVIR
  35. TRAZODONE [Concomitant]
     Active Substance: TRAZODONE HYDROCHLORIDE
  36. TRADJENTA [Concomitant]
     Active Substance: LINAGLIPTIN
  37. GEMFIBROZIL [Concomitant]
     Active Substance: GEMFIBROZIL
  38. METFORMIN [Concomitant]
     Active Substance: METFORMIN HYDROCHLORIDE
  39. METRONIDAZOLE [Concomitant]
     Active Substance: METRONIDAZOLE

REACTIONS (9)
  - Chronic kidney disease [Not Recovered/Not Resolved]
  - Aortic arteriosclerosis [Not Recovered/Not Resolved]
  - Pain [Not Recovered/Not Resolved]
  - Emotional distress [Not Recovered/Not Resolved]
  - Anxiety [Not Recovered/Not Resolved]
  - Anhedonia [Not Recovered/Not Resolved]
  - Hypertension [Unknown]
  - Depression [Unknown]
  - Anaemia [Not Recovered/Not Resolved]

NARRATIVE: CASE EVENT DATE: 20130101
